FAERS Safety Report 8246572-0 (Version None)
Quarter: 2012Q1

REPORT INFORMATION
  Report Type: 
  Country: None (occurrence: None)
  Receive Date: 20120330
  Receipt Date: 20120323
  Transmission Date: 20120608
  Serious: Yes (Other)
  Sender: FDA-Public Use
  Company Number: PHHY2012BR026170

PATIENT
  Age: 62 Year
  Sex: Female

DRUGS (3)
  1. INDAPAMIDE [Suspect]
     Dosage: UNK UKN, UNK
  2. GALVUS [Suspect]
     Dosage: UNK UKN, UNK
  3. EXFORGE [Suspect]
     Dosage: 1 TABLET (320/5 MG) A DAY

REACTIONS (3)
  - MALAISE [None]
  - DIABETES MELLITUS [None]
  - DIZZINESS [None]
